FAERS Safety Report 12589311 (Version 1)
Quarter: 2016Q3

REPORT INFORMATION
  Report Type: Spontaneous
  Country: US (occurrence: US)
  Receive Date: 20160725
  Receipt Date: 20160725
  Transmission Date: 20161109
  Serious: No
  Sender: FDA-Public Use
  Company Number: US-JNJFOC-20160626835

PATIENT
  Age: 55 Year
  Sex: Male
  Weight: 108.86 kg

DRUGS (3)
  1. MOTRIN IB [Suspect]
     Active Substance: IBUPROFEN
     Indication: BACK PAIN
     Dosage: 4 CAPLETS, TWICE A DAY, FOUR CAPLETS MORNING AND 4 CAPLETS EVENING.
     Route: 048
  2. MOTRIN IB [Suspect]
     Active Substance: IBUPROFEN
     Indication: PAIN IN EXTREMITY
     Dosage: 4 CAPLETS, TWICE A DAY, FOUR CAPLETS MORNING AND 4 CAPLETS EVENING.
     Route: 048
  3. MOTRIN IB [Suspect]
     Active Substance: IBUPROFEN
     Indication: ARTHRALGIA
     Dosage: 4 CAPLETS, TWICE A DAY, FOUR CAPLETS MORNING AND 4 CAPLETS EVENING.
     Route: 048

REACTIONS (2)
  - Overdose [Unknown]
  - Incorrect drug administration duration [Unknown]
